FAERS Safety Report 24288417 (Version 7)
Quarter: 2025Q2

REPORT INFORMATION
  Report Type: Report from Study
  Country: CA (occurrence: CA)
  Receive Date: 20240906
  Receipt Date: 20250515
  Transmission Date: 20250717
  Serious: Yes (Hospitalization, Other)
  Sender: TAKEDA
  Company Number: CA-TAKEDA-2024TUS012064

PATIENT
  Age: 32 Year
  Sex: Female

DRUGS (17)
  1. VEDOLIZUMAB [Suspect]
     Active Substance: VEDOLIZUMAB
     Indication: Crohn^s disease
  2. VEDOLIZUMAB [Suspect]
     Active Substance: VEDOLIZUMAB
  3. VEDOLIZUMAB [Suspect]
     Active Substance: VEDOLIZUMAB
  4. VEDOLIZUMAB [Suspect]
     Active Substance: VEDOLIZUMAB
     Dosage: 300 MILLIGRAM, Q4WEEKS
     Dates: start: 20240704
  5. VEDOLIZUMAB [Suspect]
     Active Substance: VEDOLIZUMAB
     Dosage: 300 MILLIGRAM, Q6WEEKS
     Dates: start: 20241010
  6. VEDOLIZUMAB [Suspect]
     Active Substance: VEDOLIZUMAB
     Dosage: 300 MILLIGRAM, Q6WEEKS
  7. VEDOLIZUMAB [Suspect]
     Active Substance: VEDOLIZUMAB
     Dosage: 300 MILLIGRAM, Q6WEEKS
  8. VEDOLIZUMAB [Suspect]
     Active Substance: VEDOLIZUMAB
     Dosage: 300 MILLIGRAM, Q6WEEKS
  9. LORAZEPAM [Concomitant]
     Active Substance: LORAZEPAM
  10. HYDROMORPHONE [Concomitant]
     Active Substance: HYDROMORPHONE
  11. OXYCODONE [Concomitant]
     Active Substance: OXYCODONE
  12. CLONAZEPAM [Concomitant]
     Active Substance: CLONAZEPAM
  13. ASPEN [Concomitant]
     Active Substance: POPULUS TREMULOIDES POLLEN
  14. TRAZODONE [Concomitant]
     Active Substance: TRAZODONE HYDROCHLORIDE
     Dosage: 100 MILLIGRAM, QD
  15. ZOFRAN [Concomitant]
     Active Substance: ONDANSETRON HYDROCHLORIDE
  16. GABAPENTIN [Concomitant]
     Active Substance: GABAPENTIN
     Dosage: 100 MILLIGRAM, TID
  17. MORPHINE [Concomitant]
     Active Substance: MORPHINE
     Dosage: UNK UNK, BID

REACTIONS (14)
  - Syncope [Recovered/Resolved]
  - Crohn^s disease [Not Recovered/Not Resolved]
  - Confusional state [Unknown]
  - Dysphagia [Unknown]
  - Migraine [Unknown]
  - Skin ulcer [Unknown]
  - Abdominal pain [Recovered/Resolved]
  - Nausea [Recovered/Resolved]
  - Vomiting [Recovering/Resolving]
  - Drug ineffective [Unknown]
  - Off label use [Unknown]
  - Dizziness [Recovered/Resolved]
  - Asthenia [Unknown]
  - Oropharyngeal pain [Recovering/Resolving]

NARRATIVE: CASE EVENT DATE: 20240704
